FAERS Safety Report 25785687 (Version 2)
Quarter: 2025Q3

REPORT INFORMATION
  Report Type: Spontaneous
  Country: EU (occurrence: EU)
  Receive Date: 20250910
  Receipt Date: 20250922
  Transmission Date: 20251020
  Serious: Yes (Other)
  Sender: AUROBINDO
  Company Number: EU-PFIZER INC-PV202500101530

PATIENT
  Age: 69 Year
  Sex: Male

DRUGS (2)
  1. METHOTREXATE [Suspect]
     Active Substance: METHOTREXATE
     Indication: Rheumatoid arthritis
     Route: 065
  2. DEFLAZACORT [Suspect]
     Active Substance: DEFLAZACORT
     Indication: Rheumatoid arthritis
     Dosage: 6 MILLIGRAM, ONCE A DAY
     Route: 065

REACTIONS (1)
  - Aspergillus infection [Recovered/Resolved]
